FAERS Safety Report 9994735 (Version 1)
Quarter: 2014Q1

REPORT INFORMATION
  Report Type: Spontaneous
  Country: US (occurrence: None)
  Receive Date: 20140307
  Receipt Date: 20140307
  Transmission Date: 20141002
  Serious: Yes (Other)
  Sender: FDA-Public Use
  Company Number: None

PATIENT
  Age: 61 Year
  Sex: Female

DRUGS (2)
  1. STIVARGA 40MG BAYER [Suspect]
     Indication: COLON CANCER
     Dosage: 160MG, UD, PO
     Route: 048
     Dates: start: 20140213, end: 20140304
  2. STIVARGA 40MG BAYER [Suspect]
     Indication: METASTASES TO LUNG
     Dosage: 160MG, UD, PO
     Route: 048
     Dates: start: 20140213, end: 20140304

REACTIONS (5)
  - Glossodynia [None]
  - Throat tightness [None]
  - Abdominal pain upper [None]
  - Fatigue [None]
  - Back pain [None]
